FAERS Safety Report 8610774-1 (Version None)
Quarter: 2012Q3

REPORT INFORMATION
  Report Type: 
  Country: None (occurrence: None)
  Receive Date: 20120808
  Receipt Date: 20120727
  Transmission Date: 20120928
  Serious: Yes (Hospitalization)
  Sender: FDA-Public Use
  Company Number: FK201202181

PATIENT
  Age: 42 Year
  Sex: Male

DRUGS (2)
  1. AUGMENTIN '125' [Concomitant]
  2. CEFTRIAXON [Suspect]
     Indication: TOOTH ABSCESS
     Dosage: 1 GM, 1 IN 1 D, INTRAMUSCULAR
     Route: 030
     Dates: start: 20120711, end: 20120711

REACTIONS (2)
  - SYNCOPE [None]
  - HYPERHIDROSIS [None]
